FAERS Safety Report 6554140-1 (Version None)
Quarter: 2010Q1

REPORT INFORMATION
  Report Type: 
  Country: None (occurrence: None)
  Receive Date: 20100125
  Receipt Date: 20100125
  Transmission Date: 20100710
  Serious: Yes (Other)
  Sender: FDA-Public Use
  Company Number: None

PATIENT
  Age: 45 Year
  Sex: Female

DRUGS (2)
  1. ZICAM COLD REMEDY GEL SWABS UNKNOWN [Suspect]
     Indication: NASAL CONGESTION
     Dosage: ONE GEL SWAB ONE TIME NASAL
     Route: 045
     Dates: start: 20091109, end: 20091209
  2. ZICAM COLD REMEDY GEL SWABS UNKNOWN [Suspect]
     Indication: NASOPHARYNGITIS
     Dosage: ONE GEL SWAB ONE TIME NASAL
     Route: 045
     Dates: start: 20091109, end: 20091209

REACTIONS (7)
  - EYE IRRITATION [None]
  - EYE PAIN [None]
  - HEADACHE [None]
  - LACRIMATION INCREASED [None]
  - NASAL DISCOMFORT [None]
  - NASAL DRYNESS [None]
  - RHINORRHOEA [None]
